FAERS Safety Report 8165338-3 (Version None)
Quarter: 2012Q1

REPORT INFORMATION
  Report Type: 
  Country: None (occurrence: None)
  Receive Date: 20120227
  Receipt Date: 20120103
  Transmission Date: 20120608
  Serious: No
  Sender: FDA-Public Use
  Company Number: US-MYLANLABS-2011S1023707

PATIENT
  Sex: Female

DRUGS (4)
  1. CLONAZEPAM [Suspect]
     Indication: TORTICOLLIS
  2. CLONAZEPAM [Suspect]
  3. GABAPENTIN [Suspect]
     Indication: TORTICOLLIS
  4. CLONAZEPAM [Suspect]
     Indication: TORTICOLLIS
     Route: 048

REACTIONS (10)
  - DRUG INEFFECTIVE FOR UNAPPROVED INDICATION [None]
  - NAUSEA [None]
  - HEADACHE [None]
  - PAIN [None]
  - MYALGIA [None]
  - SLEEP DISORDER [None]
  - MUSCULOSKELETAL PAIN [None]
  - PAINFUL RESPIRATION [None]
  - SLEEP TERROR [None]
  - MUSCULOSKELETAL STIFFNESS [None]
